FAERS Safety Report 10291177 (Version 4)
Quarter: 2016Q2

REPORT INFORMATION
  Report Type: Spontaneous
  Country: FR (occurrence: FR)
  Receive Date: 20140710
  Receipt Date: 20160429
  Transmission Date: 20160815
  Serious: Yes (Hospitalization, Other)
  Sender: FDA-Public Use
  Company Number: FR-ELI_LILLY_AND_COMPANY-FR201407000992

PATIENT
  Age: 55 Year
  Sex: Male

DRUGS (1)
  1. ZYPADHERA [Suspect]
     Active Substance: OLANZAPINE PAMOATE
     Indication: PRODUCT USED FOR UNKNOWN INDICATION
     Dosage: 300 MG, 2/M
     Route: 030
     Dates: start: 20130411

REACTIONS (11)
  - Somnolence [Unknown]
  - Confusional state [Unknown]
  - Hypertension [Recovered/Resolved]
  - Restless legs syndrome [Unknown]
  - Fall [Unknown]
  - Disorientation [Unknown]
  - Dysarthria [Unknown]
  - Hyperthermia [Unknown]
  - Type 1 diabetes mellitus [Recovered/Resolved with Sequelae]
  - Syncope [Unknown]
  - Blood pressure increased [Unknown]

NARRATIVE: CASE EVENT DATE: 20140620
